FAERS Safety Report 11343059 (Version 2)
Quarter: 2016Q1

REPORT INFORMATION
  Report Type: Spontaneous
  Country: US (occurrence: US)
  Receive Date: 20150805
  Receipt Date: 20160203
  Transmission Date: 20160525
  Serious: No
  Sender: FDA-Public Use
  Company Number: US-ANACOR-2015ANA00071

PATIENT
  Age: 60 Year
  Sex: Female
  Weight: 86.17 kg

DRUGS (4)
  1. KERYDIN [Suspect]
     Active Substance: TAVABOROLE
     Indication: ONYCHOMYCOSIS
     Dosage: UNK UNK, 2X/DAY
     Route: 061
     Dates: start: 201506, end: 2015
  2. KERYDIN [Suspect]
     Active Substance: TAVABOROLE
     Dosage: UNK
     Dates: start: 201507
  3. KERYDIN [Suspect]
     Active Substance: TAVABOROLE
     Dosage: UNK UNK, 2X/DAY
     Route: 061
     Dates: start: 201506
  4. LAMOTRIGINE. [Concomitant]
     Active Substance: LAMOTRIGINE

REACTIONS (2)
  - Inappropriate schedule of drug administration [Not Recovered/Not Resolved]
  - Nail discolouration [Recovered/Resolved]

NARRATIVE: CASE EVENT DATE: 201506
